FAERS Safety Report 9180732 (Version 1)
Quarter: 2013Q1

REPORT INFORMATION
  Report Type: Spontaneous
  Country: BR (occurrence: None)
  Receive Date: 20130320
  Receipt Date: 20130320
  Transmission Date: 20140127
  Serious: Yes (Hospitalization)
  Sender: FDA-Public Use
  Company Number: DSU-2013-02201

PATIENT
  Age: 54 Year
  Sex: Male

DRUGS (4)
  1. OLMETEC (OLMESARTAN MEDOXOMIL) [Suspect]
     Indication: HYPERTENSION
     Dosage: (20 MG, QD)
     Route: 048
  2. APRESOLINE (HYDRALAZINE HYDROCHLORIDE) (HYDRALAZINE) [Concomitant]
  3. CONCOR (BISOPROLOL FUMARATE) (BISOPROLOL FUMARATE) [Concomitant]
  4. (AMIODARONE HYDROCHLORIDE) (AMIODARONE HYDROCHLORIDE) [Concomitant]

REACTIONS (1)
  - Hypertensive crisis [None]
